FAERS Safety Report 8242918-8 (Version None)
Quarter: 2012Q1

REPORT INFORMATION
  Report Type: 
  Country: None (occurrence: None)
  Receive Date: 20120329
  Receipt Date: 20120329
  Transmission Date: 20120608
  Serious: No
  Sender: FDA-Public Use
  Company Number: None

PATIENT
  Age: 41 Year
  Sex: Female
  Weight: 56.699 kg

DRUGS (1)
  1. AMPYRA [Suspect]
     Indication: MULTIPLE SCLEROSIS
     Dosage: 1 PILL
     Dates: start: 20111016, end: 20111205

REACTIONS (3)
  - GAIT DISTURBANCE [None]
  - DIPLOPIA [None]
  - SENSORY DISTURBANCE [None]
